FAERS Safety Report 9408608 (Version 2)
Quarter: 2013Q4

REPORT INFORMATION
  Report Type: Spontaneous
  Country: US (occurrence: US)
  Receive Date: 20130718
  Receipt Date: 20131010
  Transmission Date: 20140711
  Serious: No
  Sender: FDA-Public Use
  Company Number: US-ASTELLAS-2013US006359

PATIENT
  Age: 78 Year
  Sex: Female
  Weight: 70 kg

DRUGS (2)
  1. VESICARE [Suspect]
     Indication: INCONTINENCE
     Dosage: 5 MG, UID/QD
     Route: 048
     Dates: start: 20121027
  2. MYRBETRIQ [Concomitant]
     Indication: INCONTINENCE
     Dosage: 25 MG, UID/QD
     Route: 048
     Dates: start: 20130515

REACTIONS (1)
  - Constipation [Unknown]
